FAERS Safety Report 12383685 (Version 3)
Quarter: 2016Q2

REPORT INFORMATION
  Report Type: Report from Study
  Country: BR (occurrence: BR)
  Receive Date: 20160519
  Receipt Date: 20160617
  Transmission Date: 20160815
  Serious: Yes (Hospitalization, Other)
  Sender: FDA-Public Use
  Company Number: PHHY2015BR156450

PATIENT
  Age: 78 Year
  Sex: Female
  Weight: 95 kg

DRUGS (3)
  1. EXELON PATCH [Suspect]
     Active Substance: RIVASTIGMINE
     Indication: DEMENTIA ALZHEIMER^S TYPE
     Dosage: PATCH 5 (CM2)
     Route: 062
  2. EXELON PATCH [Suspect]
     Active Substance: RIVASTIGMINE
     Dosage: PATCH 10 (CM2)
     Route: 062
  3. XARELTO [Concomitant]
     Active Substance: RIVAROXABAN
     Indication: THROMBOSIS
     Dosage: 1 DF, QD
     Route: 048

REACTIONS (17)
  - Varicose vein [Unknown]
  - Drug dependence [Not Recovered/Not Resolved]
  - Application site pruritus [Unknown]
  - Asthenia [Recovered/Resolved]
  - Erythema [Not Recovered/Not Resolved]
  - Asthenia [Recovering/Resolving]
  - Application site reaction [Unknown]
  - Application site erythema [Unknown]
  - Mood altered [Recovered/Resolved]
  - Pruritus [Not Recovered/Not Resolved]
  - Sluggishness [Recovering/Resolving]
  - Venous thrombosis [Recovered/Resolved]
  - Burning sensation [Not Recovered/Not Resolved]
  - Influenza [Recovering/Resolving]
  - Drug ineffective [Unknown]
  - Limb discomfort [Unknown]
  - Dizziness [Recovered/Resolved]

NARRATIVE: CASE EVENT DATE: 201606
